FAERS Safety Report 7324439-X (Version None)
Quarter: 2011Q1

REPORT INFORMATION
  Report Type: 
  Country: None (occurrence: None)
  Receive Date: 20110203
  Receipt Date: 20100301
  Transmission Date: 20110831
  Serious: Yes (Life-Threatening)
  Sender: FDA-Public Use
  Company Number: 007972

PATIENT
  Sex: Female
  Weight: 49.4 kg

DRUGS (5)
  1. KEPPRA [Suspect]
     Indication: CONVULSION
     Dosage: 500 MG ORAL, 1000 MG, 1500 MG ORAL
     Route: 048
     Dates: start: 20100201, end: 20100201
  2. KEPPRA [Suspect]
     Indication: CONVULSION
     Dosage: 500 MG ORAL, 1000 MG, 1500 MG ORAL
     Route: 048
     Dates: start: 20100201, end: 20100201
  3. KEPPRA [Suspect]
     Indication: CONVULSION
     Dosage: 500 MG ORAL, 1000 MG, 1500 MG ORAL
     Route: 048
     Dates: start: 20100201
  4. ESTRADIOL [Concomitant]
  5. ATENOLOL [Concomitant]

REACTIONS (7)
  - CRYING [None]
  - ANXIETY [None]
  - SUICIDAL IDEATION [None]
  - DEPRESSION [None]
  - IRRITABILITY [None]
  - DIZZINESS [None]
  - SOMNOLENCE [None]
